FAERS Safety Report 15134187 (Version 1)
Quarter: 2018Q3

REPORT INFORMATION
  Report Type: Spontaneous
  Country: US (occurrence: US)
  Receive Date: 20180712
  Receipt Date: 20180712
  Transmission Date: 20181010
  Serious: No
  Sender: FDA-Public Use
  Company Number: US-IMPAX LABORATORIES, INC-2018-IPXL-00656

PATIENT
  Sex: Female
  Weight: 57 kg

DRUGS (13)
  1. PROPRANOLOL [Concomitant]
     Active Substance: PROPRANOLOL HYDROCHLORIDE
     Dosage: 80 MG, 1 TABLET EVERY DAY
     Route: 048
  2. AMITRIPTYLINE [Concomitant]
     Active Substance: AMITRIPTYLINE
     Indication: PRODUCT USED FOR UNKNOWN INDICATION
     Dosage: 25 MG, 2?4 TABLETS EVERY DAY AT BEDTIME
     Route: 048
  3. PROPRANOLOL [Concomitant]
     Active Substance: PROPRANOLOL HYDROCHLORIDE
     Indication: PRODUCT USED FOR UNKNOWN INDICATION
     Dosage: 40 MG, 1 TABLET EVERY DAY AS NEEDED
     Route: 048
  4. NORTHERA [Concomitant]
     Active Substance: DROXIDOPA
     Dosage: 300 MG, 1 CAP 3 TIMES A DAY(MORNING, MIDDAY, AND 3 HRS PRIOR TO BEDTIME)
     Route: 048
     Dates: start: 20170323
  5. GABAPENTIN. [Concomitant]
     Active Substance: GABAPENTIN
     Indication: PRODUCT USED FOR UNKNOWN INDICATION
     Dosage: 600 MG, 2 TABLET 2 TIMES EVERY DAY
     Route: 048
  6. MAXALT [Concomitant]
     Active Substance: RIZATRIPTAN BENZOATE
     Indication: PRODUCT USED FOR UNKNOWN INDICATION
     Dosage: 10 MG, 1 TABLET  ONCE (MAY REPEAT AT 2 HOUR INTERVALS, DO NOT EXCEED 30 MG IN 24 HRS)
     Route: 048
  7. MIDODRINE HYDROCHLORIDE. [Suspect]
     Active Substance: MIDODRINE HYDROCHLORIDE
     Indication: PRODUCT USED FOR UNKNOWN INDICATION
     Dosage: UNK
     Route: 065
     Dates: start: 2017
  8. FLORINEF ACETATE [Suspect]
     Active Substance: FLUDROCORTISONE ACETATE
     Indication: PRODUCT USED FOR UNKNOWN INDICATION
     Dosage: 0.1 MG, 1 TABLET EVERY DAY
     Route: 048
  9. PROPRANOLOL [Concomitant]
     Active Substance: PROPRANOLOL HYDROCHLORIDE
     Dosage: 80 MG, 1 TABLET 2 TIMES EVERY DAY
     Route: 048
  10. NORTHERA [Concomitant]
     Active Substance: DROXIDOPA
     Dosage: 600 MG, TID
     Route: 048
     Dates: start: 20170323
  11. IBUPROFEN. [Concomitant]
     Active Substance: IBUPROFEN
     Indication: PRODUCT USED FOR UNKNOWN INDICATION
     Dosage: 800 MG, 1 TABLET 3 TIMES EVERY DAY WITH FOOD AS NEEDED
     Route: 048
  12. NORTHERA [Concomitant]
     Active Substance: DROXIDOPA
     Indication: AUTONOMIC NERVOUS SYSTEM IMBALANCE
     Dosage: 300 MG, 1 CAP 3 TIMES A DAY(MORNING, MIDDAY, AND 3 HRS PRIOR TO BEDTIME)
     Route: 048
     Dates: start: 20170323
  13. FIORINAL [Concomitant]
     Active Substance: ASPIRIN\BUTALBITAL\CAFFEINE
     Indication: PRODUCT USED FOR UNKNOWN INDICATION
     Dosage: 1 CAPSULE (50 MG/325 MG/40 MG) EVERY 4 HOURS AS NEEDED (NOT TO EXCEED 6 CAPS PER 24 HRS)
     Route: 048

REACTIONS (1)
  - Migraine [Unknown]
